FAERS Safety Report 4543820-5 (Version None)
Quarter: 2004Q4

REPORT INFORMATION
  Report Type: 
  Country: None (occurrence: None)
  Receive Date: 20041229
  Receipt Date: 20041229
  Transmission Date: 20050328
  Serious: Yes (Other)
  Sender: FDA-Public Use
  Company Number: None

PATIENT
  Sex: Female

DRUGS (2)
  1. LEVAQUIN [Suspect]
     Indication: BRONCHITIS
     Dosage: 1 PO QD
     Route: 048
     Dates: start: 20041115, end: 20041120
  2. LEVAQUIN [Suspect]
     Indication: SINUSITIS
     Dosage: 1 PO QD
     Route: 048
     Dates: start: 20041115, end: 20041120

REACTIONS (1)
  - ARTHRALGIA [None]
